FAERS Safety Report 6086494-7 (Version None)
Quarter: 2009Q1

REPORT INFORMATION
  Report Type: 
  Country: None (occurrence: None)
  Receive Date: 20090223
  Receipt Date: 20090219
  Transmission Date: 20090719
  Serious: Yes (Death, Hospitalization)
  Sender: FDA-Public Use
  Company Number: FR-JNJFOC-20090204804

PATIENT
  Age: 91 Year
  Sex: Male

DRUGS (2)
  1. OFLOCET [Suspect]
     Indication: INTERVERTEBRAL DISCITIS
     Route: 065
  2. RIFADIN [Suspect]
     Indication: INTERVERTEBRAL DISCITIS
     Route: 048

REACTIONS (2)
  - RENAL FAILURE ACUTE [None]
  - SEPTIC SHOCK [None]
